FAERS Safety Report 4700291-3 (Version None)
Quarter: 2005Q2

REPORT INFORMATION
  Report Type: 
  Country: None (occurrence: None)
  Receive Date: 20050627
  Receipt Date: 20040729
  Transmission Date: 20051028
  Serious: Yes (Life-Threatening)
  Sender: FDA-Public Use
  Company Number: US-MERCK-0407USA02510

PATIENT
  Age: 71 Year
  Sex: Female

DRUGS (4)
  1. ZOCOR [Suspect]
     Route: 048
     Dates: start: 19970101, end: 20040101
  2. ASPIRIN [Concomitant]
     Route: 065
  3. VITAMIN E [Concomitant]
     Route: 065
  4. ATENOLOL [Concomitant]
     Route: 065

REACTIONS (4)
  - NAIL DISORDER [None]
  - PAIN [None]
  - PSORIASIS [None]
  - SKIN HAEMORRHAGE [None]
